FAERS Safety Report 11685072 (Version 6)
Quarter: 2015Q4

REPORT INFORMATION
  Report Type: Report from Study
  Country: GB (occurrence: GB)
  Receive Date: 20151030
  Receipt Date: 20151204
  Transmission Date: 20160304
  Serious: Yes (Hospitalization, Other)
  Sender: FDA-Public Use
  Company Number: GB-ROCHE-1649840

PATIENT
  Age: 72 Year
  Sex: Female
  Weight: 62.7 kg

DRUGS (8)
  1. PROPANOLOL [Concomitant]
     Active Substance: PROPRANOLOL HYDROCHLORIDE
     Route: 065
     Dates: start: 2014
  2. BEVACIZUMAB [Suspect]
     Active Substance: BEVACIZUMAB
     Dosage: DATE OF LAST DOSE PRIOR TO SAE 15/OCT/2015
     Route: 042
     Dates: start: 20150903
  3. SITAGLIPTIN [Concomitant]
     Active Substance: SITAGLIPTIN
     Route: 065
     Dates: start: 2014
  4. AMLODIPINE [Concomitant]
     Active Substance: AMLODIPINE BESYLATE
     Route: 065
     Dates: start: 20150813
  5. LAXIDO [Concomitant]
     Active Substance: POLYETHYLENE GLYCOL 3350\POTASSIUM CHLORIDE\SODIUM BICARBONATE\SODIUM CHLORIDE
     Dosage: 2 SACHETS
     Route: 065
     Dates: start: 2015
  6. BEVACIZUMAB [Suspect]
     Active Substance: BEVACIZUMAB
     Indication: OVARIAN CANCER
     Dosage: 23/JUL/2015: MOST RECENT DOSE OF BEVACIZUMAB PRIOR TO SERIOUS ADVERSE EVENT.
     Route: 042
     Dates: start: 20150409, end: 20150813
  7. EPREX [Concomitant]
     Active Substance: ERYTHROPOIETIN
     Dosage: 30,000 UNITS/ 0.75ML
     Route: 058
     Dates: start: 201507
  8. CO-DYDRAMOL [Concomitant]
     Active Substance: ACETAMINOPHEN\DIHYDROCODEINE
     Dosage: 10/500MG TDS
     Route: 065
     Dates: start: 20150801

REACTIONS (4)
  - Hypertensive encephalopathy [Recovered/Resolved]
  - Transient ischaemic attack [Recovered/Resolved]
  - Hypertension [Not Recovered/Not Resolved]
  - Hemiparesis [Not Recovered/Not Resolved]

NARRATIVE: CASE EVENT DATE: 20150813
